FAERS Safety Report 10079926 (Version 1)
Quarter: 2014Q2

REPORT INFORMATION
  Report Type: Spontaneous
  Country: US (occurrence: US)
  Receive Date: 20140415
  Receipt Date: 20140415
  Transmission Date: 20141212
  Serious: No
  Sender: FDA-Public Use
  Company Number: US-ASTRAZENECA-2014SE19608

PATIENT
  Age: 78 Year
  Sex: Male
  Weight: 59 kg

DRUGS (1)
  1. OMEPRAZOLE [Suspect]
     Indication: DYSPHAGIA
     Route: 048
     Dates: start: 201401

REACTIONS (2)
  - Dysphagia [Unknown]
  - Drug ineffective [Unknown]
